FAERS Safety Report 7629797-4 (Version None)
Quarter: 2011Q3

REPORT INFORMATION
  Report Type: 
  Country: None (occurrence: None)
  Receive Date: 20110722
  Receipt Date: 20110718
  Transmission Date: 20111222
  Serious: Yes (Hospitalization)
  Sender: FDA-Public Use
  Company Number: FR-PFIZER INC-2011161600

PATIENT
  Age: 58 Year
  Sex: Female

DRUGS (14)
  1. NOVORAPID [Concomitant]
  2. LANTUS [Concomitant]
  3. PARACETAMOL [Concomitant]
  4. CLINDAMYCIN HCL [Suspect]
     Indication: ERYSIPELAS
     Dosage: 1 DF, 3X/DAY
     Route: 042
     Dates: start: 20110530, end: 20110603
  5. PENICILLIN G [Suspect]
     Indication: ERYSIPELAS
     Dosage: 1.5 KIU, 4 TIMES A DAY
     Route: 042
     Dates: start: 20110523, end: 20110604
  6. NABUMETONE [Concomitant]
  7. ALISKIREN [Concomitant]
  8. LASIX [Concomitant]
  9. NEXIUM [Concomitant]
  10. ACUPAN [Concomitant]
  11. TRANSIPEG [Concomitant]
  12. METFORMIN HYDROCHLORIDE [Concomitant]
  13. LOVENOX [Concomitant]
  14. NEBIVOLOL [Concomitant]

REACTIONS (2)
  - RASH MACULO-PAPULAR [None]
  - ACUTE GENERALISED EXANTHEMATOUS PUSTULOSIS [None]
